FAERS Safety Report 5124233-4 (Version None)
Quarter: 2006Q4

REPORT INFORMATION
  Report Type: 
  Country: None (occurrence: None)
  Receive Date: 20061010
  Receipt Date: 20060926
  Transmission Date: 20070319
  Serious: Yes (Other)
  Sender: FDA-Public Use
  Company Number: FR-SANOFI-SYNTHELABO-A02200602486

PATIENT
  Sex: Male

DRUGS (3)
  1. TRANXENE [Concomitant]
     Indication: DRUG USE FOR UNKNOWN INDICATION
     Dosage: UNK
     Route: 048
  2. KERLONE [Suspect]
     Indication: EPINEPHRINE INCREASED
     Dosage: UNK
     Route: 048
  3. KERLONE [Suspect]
     Dosage: UNK
     Route: 048

REACTIONS (5)
  - CONDITION AGGRAVATED [None]
  - MANIA [None]
  - PARAESTHESIA [None]
  - SLEEP DISORDER [None]
  - SUICIDAL IDEATION [None]
